FAERS Safety Report 12238534 (Version 3)
Quarter: 2017Q4

REPORT INFORMATION
  Report Type: Report from Study
  Country: GB (occurrence: GB)
  Receive Date: 20160405
  Receipt Date: 20171211
  Transmission Date: 20180320
  Serious: Yes (Hospitalization, Other)
  Sender: FDA-Public Use
  Company Number: GB-BEH-2016060798

PATIENT
  Age: 19 Year
  Sex: Male

DRUGS (1)
  1. PLACEBO [Suspect]
     Active Substance: UNSPECIFIED INGREDIENT
     Indication: TRAUMATIC HAEMORRHAGE
     Route: 065
     Dates: start: 20160314

REACTIONS (3)
  - Compartment syndrome [Recovered/Resolved with Sequelae]
  - Wound haemorrhage [Not Recovered/Not Resolved]
  - Peripheral ischaemia [Recovered/Resolved]

NARRATIVE: CASE EVENT DATE: 20160315
